FAERS Safety Report 7741562-6 (Version None)
Quarter: 2011Q3

REPORT INFORMATION
  Report Type: 
  Country: None (occurrence: None)
  Receive Date: 20110909
  Receipt Date: 20110831
  Transmission Date: 20111222
  Serious: Yes (Hospitalization, Other)
  Sender: FDA-Public Use
  Company Number: US-ASTRAZENECA-2010SE33005

PATIENT
  Age: 57 Year
  Sex: Female

DRUGS (2)
  1. SEROQUEL [Suspect]
     Indication: BIPOLAR DISORDER
     Dosage: 200 MG, SIX TABLETS AT NIGHT
     Route: 048
  2. SEROQUEL [Suspect]
     Indication: MENTAL DISORDER
     Dosage: 200 MG, SIX TABLETS AT NIGHT
     Route: 048

REACTIONS (11)
  - DEPRESSION [None]
  - ILLOGICAL THINKING [None]
  - DRUG DOSE OMISSION [None]
  - PANIC ATTACK [None]
  - SUICIDAL IDEATION [None]
  - MALAISE [None]
  - ANXIETY [None]
  - FATIGUE [None]
  - AGORAPHOBIA [None]
  - BIPOLAR DISORDER [None]
  - OFF LABEL USE [None]
